FAERS Safety Report 4897613-X (Version None)
Quarter: 2006Q1

REPORT INFORMATION
  Report Type: 
  Country: None (occurrence: None)
  Receive Date: 20060201
  Receipt Date: 20060124
  Transmission Date: 20060701
  Serious: Yes (Life-Threatening, Hospitalization, Other)
  Sender: FDA-Public Use
  Company Number: US-JNJFOC-20060105091

PATIENT
  Sex: Male
  Weight: 115.67 kg

DRUGS (7)
  1. DURAGESIC-100 [Suspect]
     Route: 062
  2. DURAGESIC-100 [Suspect]
     Route: 062
  3. LORAZEPAM [Concomitant]
  4. SOMA [Concomitant]
     Indication: MUSCLE SPASMS
     Dosage: AS NEEDED BASIS.
     Route: 048
  5. PERCOCET [Concomitant]
     Route: 048
  6. PERCOCET [Concomitant]
     Indication: BACK PAIN
     Route: 048
  7. AMARYL [Concomitant]
     Dosage: AS NEEDED.
     Route: 048

REACTIONS (8)
  - ANXIETY [None]
  - COLD SWEAT [None]
  - DEPRESSION [None]
  - DYSKINESIA [None]
  - HALLUCINATION [None]
  - HYPERHIDROSIS [None]
  - MYOCARDIAL INFARCTION [None]
  - THERAPEUTIC RESPONSE DECREASED [None]
